FAERS Safety Report 6830228-2 (Version None)
Quarter: 2010Q3

REPORT INFORMATION
  Report Type: 
  Country: None (occurrence: None)
  Receive Date: 20100712
  Receipt Date: 20090721
  Transmission Date: 20110219
  Serious: Yes (Other)
  Sender: FDA-Public Use
  Company Number: US-ASTRAZENECA-2009UW09195

PATIENT
  Age: 46 Year
  Sex: Female
  Weight: 133.8 kg

DRUGS (10)
  1. SEROQUEL [Suspect]
     Indication: INSOMNIA
     Route: 048
     Dates: start: 20040101, end: 20060101
  2. SEROQUEL [Suspect]
     Route: 048
     Dates: start: 20040823
  3. XANAX [Concomitant]
     Dates: start: 20061001
  4. TOPROL-XL [Concomitant]
     Dates: start: 20061001
  5. DOXYCYCLINE HYCLATE [Concomitant]
     Dates: start: 20040216
  6. MECLIZINE HCL [Concomitant]
     Dates: start: 20040315
  7. PREMARIN [Concomitant]
     Dates: start: 20030929
  8. WELLBUTRIN XL [Concomitant]
     Dates: start: 20040708
  9. TRAZODONE HCL [Concomitant]
     Dates: start: 20040708
  10. LEXAPRO [Concomitant]
     Dates: start: 20040930

REACTIONS (3)
  - DIABETES MELLITUS [None]
  - NEUROPATHY PERIPHERAL [None]
  - TYPE 1 DIABETES MELLITUS [None]
